FAERS Safety Report 7138397-4 (Version None)
Quarter: 2010Q4

REPORT INFORMATION
  Report Type: 
  Country: None (occurrence: None)
  Receive Date: 20101206
  Receipt Date: 20101130
  Transmission Date: 20110411
  Serious: Yes (Life-Threatening, Hospitalization)
  Sender: FDA-Public Use
  Company Number: JP-CELGENEUS-087-21880-10091212

PATIENT
  Sex: Female

DRUGS (12)
  1. REVLIMID [Suspect]
     Indication: MULTIPLE MYELOMA
     Route: 048
     Dates: start: 20100806, end: 20100810
  2. REVLIMID [Suspect]
     Route: 048
     Dates: start: 20100812, end: 20100826
  3. REVLIMID [Suspect]
     Route: 048
     Dates: start: 20100903, end: 20100921
  4. REVLIMID [Suspect]
     Route: 048
     Dates: start: 20101013, end: 20101017
  5. LENADEX [Suspect]
     Indication: MULTIPLE MYELOMA
     Route: 048
     Dates: start: 20100806, end: 20100809
  6. LENADEX [Suspect]
     Route: 048
     Dates: start: 20100814, end: 20100816
  7. LENADEX [Suspect]
     Route: 048
     Dates: start: 20100822, end: 20100824
  8. LENADEX [Suspect]
     Route: 048
     Dates: start: 20100903, end: 20100921
  9. TAKEPRON [Concomitant]
     Indication: MULTIPLE MYELOMA
     Route: 048
     Dates: start: 20100806
  10. MUCOSTA [Concomitant]
     Indication: MULTIPLE MYELOMA
     Route: 048
     Dates: start: 20100806
  11. VALTREX [Concomitant]
     Indication: PROPHYLAXIS
     Route: 048
     Dates: start: 20100806, end: 20100826
  12. ZOMETA [Concomitant]
     Indication: MULTIPLE MYELOMA
     Route: 041
     Dates: start: 20100908, end: 20100908

REACTIONS (6)
  - ALANINE AMINOTRANSFERASE INCREASED [None]
  - ASPARTATE AMINOTRANSFERASE INCREASED [None]
  - CEREBRAL INFARCTION [None]
  - EOSINOPHILIA [None]
  - LIVER DISORDER [None]
  - RASH GENERALISED [None]
